FAERS Safety Report 5678443-8 (Version None)
Quarter: 2008Q1

REPORT INFORMATION
  Report Type: 
  Country: None (occurrence: None)
  Receive Date: 20080325
  Receipt Date: 20080314
  Transmission Date: 20080703
  Serious: Yes (Hospitalization, Other)
  Sender: FDA-Public Use
  Company Number: US-JNJFOC-20080304597

PATIENT
  Sex: Male
  Weight: 80.74 kg

DRUGS (4)
  1. DURAGESIC-100 [Suspect]
     Indication: LIP AND/OR ORAL CAVITY CANCER
     Route: 062
  2. DURAGESIC-100 [Suspect]
     Route: 062
  3. ATENOLOL [Concomitant]
     Indication: BLOOD PRESSURE
     Route: 048
  4. CAPTOPRIL [Concomitant]
     Indication: BLOOD PRESSURE
     Route: 048

REACTIONS (6)
  - ANXIETY [None]
  - BLOOD PRESSURE ABNORMAL [None]
  - DIZZINESS [None]
  - INSOMNIA [None]
  - RASH [None]
  - WRONG TECHNIQUE IN DRUG USAGE PROCESS [None]
